FAERS Safety Report 10005953 (Version 1)
Quarter: 2014Q1

REPORT INFORMATION
  Report Type: Spontaneous
  Country: AU (occurrence: AU)
  Receive Date: 20140313
  Receipt Date: 20140313
  Transmission Date: 20141002
  Serious: Yes (Hospitalization)
  Sender: FDA-Public Use
  Company Number: AU-ELI_LILLY_AND_COMPANY-AU201403002519

PATIENT
  Age: 62 Year
  Sex: Male

DRUGS (8)
  1. HUMALOG LISPRO [Suspect]
     Indication: PRODUCT USED FOR UNKNOWN INDICATION
     Dosage: 14 U, TID
     Route: 065
  2. LANTUS [Concomitant]
  3. KARVEA [Concomitant]
  4. PLAVIX [Concomitant]
  5. SOMAC [Concomitant]
  6. EZETROL [Concomitant]
  7. NOTEN [Concomitant]
  8. DILTIAZEM [Concomitant]

REACTIONS (3)
  - Incorrect dose administered [Unknown]
  - Memory impairment [Unknown]
  - Blood glucose abnormal [Unknown]
